FAERS Safety Report 25905641 (Version 1)
Quarter: 2025Q4

REPORT INFORMATION
  Report Type: Spontaneous
  Country: GB (occurrence: GB)
  Receive Date: 20251010
  Receipt Date: 20251010
  Transmission Date: 20260117
  Serious: Yes (Hospitalization)
  Sender: MYLAN
  Company Number: GB-MYLANLABS-2025M1086129

PATIENT
  Age: 70 Year
  Sex: Female

DRUGS (20)
  1. SERTRALINE [Interacting]
     Active Substance: SERTRALINE HYDROCHLORIDE
     Indication: Depression
     Dosage: 50 MILLIGRAM, QD
  2. SERTRALINE [Interacting]
     Active Substance: SERTRALINE HYDROCHLORIDE
     Dosage: 50 MILLIGRAM, QD
  3. SERTRALINE [Interacting]
     Active Substance: SERTRALINE HYDROCHLORIDE
     Dosage: 50 MILLIGRAM, QD
     Route: 065
  4. SERTRALINE [Interacting]
     Active Substance: SERTRALINE HYDROCHLORIDE
     Dosage: 50 MILLIGRAM, QD
     Route: 065
  5. SERTRALINE [Interacting]
     Active Substance: SERTRALINE HYDROCHLORIDE
     Dosage: 100 MILLIGRAM, QD (DOSE INCREASED)
  6. SERTRALINE [Interacting]
     Active Substance: SERTRALINE HYDROCHLORIDE
     Dosage: 100 MILLIGRAM, QD (DOSE INCREASED)
  7. SERTRALINE [Interacting]
     Active Substance: SERTRALINE HYDROCHLORIDE
     Dosage: 100 MILLIGRAM, QD (DOSE INCREASED)
     Route: 065
  8. SERTRALINE [Interacting]
     Active Substance: SERTRALINE HYDROCHLORIDE
     Dosage: 100 MILLIGRAM, QD (DOSE INCREASED)
     Route: 065
  9. RIFAMPIN [Interacting]
     Active Substance: RIFAMPIN
     Indication: Brucellosis
     Dosage: UNK
  10. RIFAMPIN [Interacting]
     Active Substance: RIFAMPIN
     Dosage: UNK
     Route: 042
  11. RIFAMPIN [Interacting]
     Active Substance: RIFAMPIN
     Dosage: UNK
     Route: 042
  12. RIFAMPIN [Interacting]
     Active Substance: RIFAMPIN
     Dosage: UNK
  13. RIFAMPIN [Interacting]
     Active Substance: RIFAMPIN
     Indication: Brucellosis
     Dosage: UNK
  14. RIFAMPIN [Interacting]
     Active Substance: RIFAMPIN
     Dosage: UNK
     Route: 048
  15. RIFAMPIN [Interacting]
     Active Substance: RIFAMPIN
     Dosage: UNK
     Route: 048
  16. RIFAMPIN [Interacting]
     Active Substance: RIFAMPIN
     Dosage: UNK
  17. DOXYCYCLINE [Concomitant]
     Active Substance: DOXYCYCLINE
     Indication: Brucellosis
     Dosage: UNK
  18. DOXYCYCLINE [Concomitant]
     Active Substance: DOXYCYCLINE
     Dosage: UNK
     Route: 048
  19. DOXYCYCLINE [Concomitant]
     Active Substance: DOXYCYCLINE
     Dosage: UNK
     Route: 048
  20. DOXYCYCLINE [Concomitant]
     Active Substance: DOXYCYCLINE
     Dosage: UNK

REACTIONS (2)
  - Drug interaction [Recovering/Resolving]
  - Panic disorder [Recovering/Resolving]
